FAERS Safety Report 11317812 (Version 2)
Quarter: 2015Q3

REPORT INFORMATION
  Report Type: Spontaneous
  Country: US (occurrence: US)
  Receive Date: 20150728
  Receipt Date: 20150925
  Transmission Date: 20151125
  Serious: Yes (Other)
  Sender: FDA-Public Use
  Company Number: US-PFIZER INC-2015250399

PATIENT
  Age: 56 Year
  Sex: Male

DRUGS (1)
  1. XELJANZ [Suspect]
     Active Substance: TOFACITINIB CITRATE
     Indication: RHEUMATOID ARTHRITIS
     Dosage: 5 MG (1 TABLET), 2X/DAY (WITH MEALS)
     Route: 048

REACTIONS (7)
  - Depression [Unknown]
  - Memory impairment [Unknown]
  - Anxiety [Unknown]
  - Abdominal pain upper [Unknown]
  - Nephrolithiasis [Unknown]
  - Intentional product misuse [Unknown]
  - Drug dose omission [Unknown]
